FAERS Safety Report 24112585 (Version 1)
Quarter: 2024Q3

REPORT INFORMATION
  Report Type: Report from Study
  Country: US (occurrence: None)
  Receive Date: 20240719
  Receipt Date: 20240719
  Transmission Date: 20241016
  Serious: Yes (Other)
  Sender: ASTRAZENECA
  Company Number: 2024A162657

PATIENT
  Sex: Female

DRUGS (8)
  1. FASENRA [Suspect]
     Active Substance: BENRALIZUMAB
     Indication: Asthma
     Dosage: 30MG/ML EVERY EIGHT WEEKS
     Route: 058
  2. BUDESONIDE\FORMOTEROL FUMARATE [Suspect]
     Active Substance: BUDESONIDE\FORMOTEROL FUMARATE
     Dosage: 80-4.5 MC
     Route: 055
  3. BUDESONIDE POW [Concomitant]
  4. LEVALBUTEROL [Concomitant]
     Active Substance: LEVALBUTEROL
  5. FORMOTEROL [Concomitant]
     Active Substance: FORMOTEROL
  6. HYDRALAZINE [Concomitant]
     Active Substance: HYDRALAZINE HYDROCHLORIDE
     Dosage: 100.0MG UNKNOWN
  7. LEVOTHYROXINE [Concomitant]
     Active Substance: LEVOTHYROXINE\LEVOTHYROXINE SODIUM
     Dosage: 175.0UG UNKNOWN
  8. METOPROLOL [Concomitant]
     Active Substance: METOPROLOL
     Dosage: 100.0MG UNKNOWN

REACTIONS (1)
  - Pancreatic carcinoma [Not Recovered/Not Resolved]
